FAERS Safety Report 13157970 (Version 3)
Quarter: 2017Q3

REPORT INFORMATION
  Report Type: Report from Study
  Country: JP (occurrence: JP)
  Receive Date: 20170127
  Receipt Date: 20170905
  Transmission Date: 20171127
  Serious: Yes (Death)
  Sender: FDA-Public Use
  Company Number: PHJP2017JP002863

PATIENT
  Age: 82 Year
  Sex: Male

DRUGS (4)
  1. DEXAMETHASONE. [Concomitant]
     Active Substance: DEXAMETHASONE
     Indication: PREMEDICATION
     Dosage: 9.9 MG, UNK
     Route: 065
     Dates: start: 20170118, end: 20170118
  2. ARZERRA [Suspect]
     Active Substance: OFATUMUMAB
     Indication: CHRONIC LYMPHOCYTIC LEUKAEMIA
     Dosage: 300 MG, UNK
     Route: 041
     Dates: start: 20170118, end: 20170118
  3. ACETAMINOPHEN. [Concomitant]
     Active Substance: ACETAMINOPHEN
     Indication: PREMEDICATION
     Dosage: 400 MG, UNK
     Route: 065
     Dates: start: 20170118, end: 20170118
  4. POLARAMINE [Concomitant]
     Active Substance: DEXCHLORPHENIRAMINE MALEATE
     Indication: PREMEDICATION
     Dosage: 5 MG, UNK
     Route: 065
     Dates: start: 20170118, end: 20170118

REACTIONS (2)
  - Aspiration [Fatal]
  - Asphyxia [Fatal]

NARRATIVE: CASE EVENT DATE: 20170119
